FAERS Safety Report 16206199 (Version 1)
Quarter: 2019Q2

REPORT INFORMATION
  Report Type: Report from Study
  Country: CH (occurrence: CH)
  Receive Date: 20190417
  Receipt Date: 20190417
  Transmission Date: 20190711
  Serious: Yes (Other)
  Sender: FDA-Public Use
  Company Number: CH-ROCHE-2276338

PATIENT
  Age: 44 Year

DRUGS (8)
  1. BETAMETHASONE. [Concomitant]
     Active Substance: BETAMETHASONE
     Indication: ECZEMA
     Route: 061
     Dates: start: 20180222, end: 20180606
  2. RITUXIMAB. [Suspect]
     Active Substance: RITUXIMAB
     Indication: B-CELL LYMPHOMA
     Dosage: NUMBER OF CYCLES WERE ADMINISTERED PRIOR TO THE SAE WAS 08.?DATE OF MOST RECENT DOSE PRIOR TO SAE: 1
     Route: 042
     Dates: start: 20180222, end: 20181025
  3. RITUXIMAB. [Suspect]
     Active Substance: RITUXIMAB
     Dosage: NUMBER OF CYCLES WERE ADMINISTERED PRIOR TO THE SAE WAS 02.
     Route: 042
     Dates: start: 20181220, end: 20190214
  4. BLINDED IBRUTINIB [Suspect]
     Active Substance: IBRUTINIB
     Indication: B-CELL LYMPHOMA
     Dosage: DATE OF MOST RECENT DOSE PRIOR TO SAE: 26/FEB/2019
     Route: 048
     Dates: start: 20180208, end: 20190227
  5. ALLOPURINOL. [Concomitant]
     Active Substance: ALLOPURINOL
     Indication: PROPHYLAXIS
     Route: 048
     Dates: start: 20180205, end: 20180620
  6. DESOGESTREL [Concomitant]
     Active Substance: DESOGESTREL
     Indication: CONTRACEPTION
     Route: 048
     Dates: start: 20180120
  7. PARACETAMOL [Concomitant]
     Active Substance: ACETAMINOPHEN
     Indication: PAIN
     Route: 048
     Dates: start: 20180208
  8. SALICYLIC ACID. [Concomitant]
     Active Substance: SALICYLIC ACID
     Indication: ECZEMA
     Route: 061
     Dates: start: 20180222, end: 20180606

REACTIONS (1)
  - Neoplasm malignant [Recovered/Resolved with Sequelae]

NARRATIVE: CASE EVENT DATE: 20190227
